FAERS Safety Report 17980536 (Version 1)
Quarter: 2020Q3

REPORT INFORMATION
  Report Type: Spontaneous
  Country: BR (occurrence: BR)
  Receive Date: 20200704
  Receipt Date: 20200704
  Transmission Date: 20201103
  Serious: Yes (Death, Other)
  Sender: FDA-Public Use
  Company Number: BR-SUN PHARMACEUTICAL INDUSTRIES LTD-2019R1-215056

PATIENT
  Age: 26 Year
  Sex: Male

DRUGS (13)
  1. TACROLIMUS. [Suspect]
     Active Substance: TACROLIMUS
     Indication: IMMUNOSUPPRESSION
     Dosage: UNK
     Route: 065
  2. SULPHAMETHOXAZOLE + TRIMETHOPRIM [Suspect]
     Active Substance: SULFAMETHOXAZOLE\TRIMETHOPRIM
     Indication: PRODUCT USED FOR UNKNOWN INDICATION
     Dosage: UNK
     Route: 065
  3. WARFARIN [Suspect]
     Active Substance: WARFARIN
     Indication: PRODUCT USED FOR UNKNOWN INDICATION
     Dosage: UNK
     Route: 065
  4. AMPHOTERICIN B. [Suspect]
     Active Substance: AMPHOTERICIN B
     Indication: PRODUCT USED FOR UNKNOWN INDICATION
     Dosage: UNK
     Route: 065
  5. VANCOMYCIN HYDROCHLORIDE. [Suspect]
     Active Substance: VANCOMYCIN HYDROCHLORIDE
     Indication: PRODUCT USED FOR UNKNOWN INDICATION
     Dosage: UNK
     Route: 065
  6. GANCICLOVIR. [Suspect]
     Active Substance: GANCICLOVIR
     Indication: PRODUCT USED FOR UNKNOWN INDICATION
     Dosage: UNK
     Route: 065
  7. MEROPENEM. [Suspect]
     Active Substance: MEROPENEM
     Indication: PRODUCT USED FOR UNKNOWN INDICATION
     Dosage: UNK
     Route: 065
  8. FLUCONAZOLE. [Suspect]
     Active Substance: FLUCONAZOLE
     Indication: PRODUCT USED FOR UNKNOWN INDICATION
     Dosage: UNK
     Route: 065
  9. POLYMYXIN B. [Suspect]
     Active Substance: POLYMYXIN B
     Indication: PRODUCT USED FOR UNKNOWN INDICATION
     Dosage: UNK
     Route: 065
  10. ANIDULAFUNGIN [Suspect]
     Active Substance: ANIDULAFUNGIN
     Indication: PRODUCT USED FOR UNKNOWN INDICATION
     Dosage: UNK
     Route: 065
  11. AMIKACIN. [Suspect]
     Active Substance: AMIKACIN
     Indication: PRODUCT USED FOR UNKNOWN INDICATION
     Dosage: UNK
     Route: 065
  12. NORADRENALIN [Concomitant]
     Active Substance: NOREPINEPHRINE\NOREPINEPHRINE BITARTRATE
     Indication: BLOOD PRESSURE MANAGEMENT
     Dosage: .05 MCG/KG/MIN, INFUSION
     Route: 065
  13. HEPARIN [Suspect]
     Active Substance: HEPARIN SODIUM
     Indication: PROPHYLAXIS
     Route: 058

REACTIONS (10)
  - Portal vein thrombosis [Unknown]
  - Dyspnoea [Unknown]
  - Klebsiella infection [Unknown]
  - Hepatic enzyme increased [Unknown]
  - Gastrointestinal haemorrhage [Fatal]
  - Transplant failure [Unknown]
  - Therapy partial responder [Unknown]
  - Tachypnoea [Unknown]
  - Disseminated sporotrichosis [Fatal]
  - Treatment failure [Unknown]
